FAERS Safety Report 8585473-5 (Version None)
Quarter: 2012Q3

REPORT INFORMATION
  Report Type: 
  Country: None (occurrence: None)
  Receive Date: 20120810
  Receipt Date: 20111103
  Transmission Date: 20120928
  Serious: No
  Sender: FDA-Public Use
  Company Number: US-GLAXOSMITHKLINE-A0951877A

PATIENT
  Age: 72 Year
  Sex: Male

DRUGS (7)
  1. REQUIP XL [Suspect]
     Indication: RESTLESS LEGS SYNDROME
     Dosage: 2MG PER DAY
     Route: 048
     Dates: start: 20070101
  2. ACCUPRIL [Concomitant]
  3. MELATONIN [Concomitant]
  4. UNKNOWN MEDICATION [Concomitant]
  5. UNKNOWN MEDICATION [Concomitant]
     Indication: HYPERCHLORHYDRIA
  6. ASPIRIN [Concomitant]
  7. PROCARDIA XL [Concomitant]

REACTIONS (2)
  - NAUSEA [None]
  - DRUG ADMINISTRATION ERROR [None]
